FAERS Safety Report 25729430 (Version 1)
Quarter: 2025Q3

REPORT INFORMATION
  Report Type: Spontaneous
  Country: US (occurrence: None)
  Receive Date: 20250827
  Receipt Date: 20250827
  Transmission Date: 20251021
  Serious: No
  Sender: ALKERMES
  Company Number: US-ALKERMES INC.-ALK-2025-001900

PATIENT
  Sex: Female

DRUGS (1)
  1. VIVITROL [Suspect]
     Active Substance: NALTREXONE
     Indication: Product used for unknown indication
     Dates: start: 202505, end: 202505

REACTIONS (2)
  - Drug ineffective [Unknown]
  - Injection site cyst [Recovered/Resolved]

NARRATIVE: CASE EVENT DATE: 20250501
